FAERS Safety Report 18273771 (Version 1)
Quarter: 2020Q3

REPORT INFORMATION
  Report Type: Report from Study
  Country: DE (occurrence: DE)
  Receive Date: 20200916
  Receipt Date: 20200916
  Transmission Date: 20201103
  Serious: Yes (Life-Threatening)
  Sender: FDA-Public Use
  Company Number: NVSC2020DE185983

PATIENT
  Age: 66 Year
  Sex: Female
  Weight: 79 kg

DRUGS (5)
  1. CYCLOPHOSPHAMIDE. [Suspect]
     Active Substance: CYCLOPHOSPHAMIDE
     Dosage: 60 MG/KG, QD
     Route: 042
     Dates: start: 20190903
  2. FLUDARABINE PHOSPHATE. [Suspect]
     Active Substance: FLUDARABINE PHOSPHATE
     Dosage: 25 MG/M2, QD
     Route: 042
     Dates: start: 20190908
  3. CYCLOPHOSPHAMIDE. [Suspect]
     Active Substance: CYCLOPHOSPHAMIDE
     Indication: METASTATIC MALIGNANT MELANOMA
     Dosage: 60 MG/KG, QD
     Route: 042
     Dates: start: 20190902
  4. FLUDARABINE PHOSPHATE. [Suspect]
     Active Substance: FLUDARABINE PHOSPHATE
     Indication: METASTATIC MALIGNANT MELANOMA
     Dosage: 25 MG/M2, QD
     Route: 042
     Dates: start: 20190904
  5. PROLEUKIN [Suspect]
     Active Substance: ALDESLEUKIN
     Indication: METASTATIC MALIGNANT MELANOMA
     Dosage: 36 MILLION INTERNATIONAL UNIT, QD
     Route: 042
     Dates: start: 20190910, end: 20190912

REACTIONS (1)
  - Upper gastrointestinal haemorrhage [Recovered/Resolved]

NARRATIVE: CASE EVENT DATE: 20190911
